FAERS Safety Report 8385317-0 (Version None)
Quarter: 2012Q2

REPORT INFORMATION
  Report Type: 
  Country: None (occurrence: None)
  Receive Date: 20120525
  Receipt Date: 20120516
  Transmission Date: 20120825
  Serious: No
  Sender: FDA-Public Use
  Company Number: US-BIOGENIDEC-2012BI017344

PATIENT
  Age: 37 Year
  Sex: Female

DRUGS (1)
  1. TYSABRI [Suspect]
     Indication: MULTIPLE SCLEROSIS
     Route: 042
     Dates: start: 20111025

REACTIONS (7)
  - FATIGUE [None]
  - GENERAL SYMPTOM [None]
  - HEADACHE [None]
  - VISION BLURRED [None]
  - SOMNOLENCE [None]
  - PREMENSTRUAL SYNDROME [None]
  - LYMPHADENOPATHY [None]
